FAERS Safety Report 23728434 (Version 1)
Quarter: 2024Q2

REPORT INFORMATION
  Report Type: Spontaneous
  Country: JP (occurrence: JP)
  Receive Date: 20240410
  Receipt Date: 20240410
  Transmission Date: 20240716
  Serious: Yes (Hospitalization, Other)
  Sender: FDA-Public Use
  Company Number: JP-MSD-M2024-09127

PATIENT
  Age: 8 Decade
  Sex: Male

DRUGS (3)
  1. KEYTRUDA [Suspect]
     Active Substance: PEMBROLIZUMAB
     Indication: Transitional cell cancer of the renal pelvis and ureter
     Dosage: 200 MILLIGRAM, Q3W
     Route: 041
     Dates: start: 20220613, end: 20240205
  2. CALONAL [Concomitant]
     Active Substance: ACETAMINOPHEN
     Dosage: UNK
     Route: 065
  3. POTASSIUM ASPARTATE [Concomitant]
     Active Substance: POTASSIUM ASPARTATE
     Dosage: UNK
     Route: 065

REACTIONS (2)
  - Hypoglycaemia [Recovering/Resolving]
  - Type 1 diabetes mellitus [Recovering/Resolving]

NARRATIVE: CASE EVENT DATE: 20240221
